FAERS Safety Report 5269559-9 (Version None)
Quarter: 2007Q1

REPORT INFORMATION
  Report Type: 
  Country: None (occurrence: None)
  Receive Date: 20070320
  Receipt Date: 20070309
  Transmission Date: 20070707
  Serious: Yes (Hospitalization)
  Sender: FDA-Public Use
  Company Number: PHBS2007NO04499

PATIENT
  Age: 81 Year
  Sex: Male

DRUGS (5)
  1. VOLTAREN [Suspect]
     Indication: MYALGIA
     Dosage: 50 MG, TID
     Route: 048
     Dates: start: 20070201, end: 20070222
  2. NORVASC [Concomitant]
     Dosage: 50 MG, QD
     Route: 048
  3. SIMVASTATIN [Concomitant]
     Dosage: 20 MG, QD
     Route: 048
  4. ATENOLOL [Concomitant]
     Dosage: 50 MG, BID
     Route: 048
  5. ALBYL-E [Suspect]
     Dosage: 160 MG, QD
     Route: 048
     Dates: end: 20070222

REACTIONS (10)
  - ANAEMIA [None]
  - DIZZINESS [None]
  - FAECES DISCOLOURED [None]
  - FATIGUE [None]
  - GASTRIC ULCER HAEMORRHAGE [None]
  - HAEMATOCHEZIA [None]
  - HAEMOGLOBIN DECREASED [None]
  - HELICOBACTER INFECTION [None]
  - HELICOBACTER PYLORI IDENTIFICATION TEST POSITIVE [None]
  - MELAENA [None]
